FAERS Safety Report 7584299-9 (Version None)
Quarter: 2011Q2

REPORT INFORMATION
  Report Type: 
  Country: None (occurrence: None)
  Receive Date: 20110630
  Receipt Date: 20110622
  Transmission Date: 20111010
  Serious: Yes (Hospitalization)
  Sender: FDA-Public Use
  Company Number: PHHY2011GB52055

PATIENT
  Age: 83 Year
  Sex: Male

DRUGS (5)
  1. ASPIRIN [Suspect]
     Indication: CARDIOVASCULAR DISORDER
     Dosage: 75 MG, QD
     Route: 048
     Dates: end: 20110530
  2. OMACOR [Concomitant]
  3. SIMVASTATIN [Concomitant]
  4. RAMIPRIL [Concomitant]
  5. IBUPROFEN [Suspect]
     Dosage: 400 MG, TID
     Route: 048
     Dates: end: 20110530

REACTIONS (9)
  - PLATELET COUNT DECREASED [None]
  - CONFUSIONAL STATE [None]
  - OESOPHAGITIS ULCERATIVE [None]
  - GASTROINTESTINAL HAEMORRHAGE [None]
  - HAEMATEMESIS [None]
  - BLOOD CREATININE INCREASED [None]
  - BLOOD UREA INCREASED [None]
  - GASTRITIS [None]
  - DUODENITIS [None]
